FAERS Safety Report 4295452-4 (Version None)
Quarter: 2004Q1

REPORT INFORMATION
  Report Type: 
  Country: None (occurrence: None)
  Receive Date: 20040216
  Receipt Date: 20031216
  Transmission Date: 20041129
  Serious: Yes (Hospitalization)
  Sender: FDA-Public Use
  Company Number: CR-ROCHE-354094

PATIENT
  Age: 44 Year
  Sex: Male
  Weight: 79 kg

DRUGS (1)
  1. XENICAL [Suspect]
     Indication: OBESITY
     Route: 048
     Dates: start: 20030615, end: 20030715

REACTIONS (1)
  - DIVERTICULITIS [None]
